FAERS Safety Report 5345140-8 (Version None)
Quarter: 2007Q2

REPORT INFORMATION
  Report Type: 
  Country: None (occurrence: None)
  Receive Date: 20070417
  Receipt Date: 20060824
  Transmission Date: 20071010
  Serious: Yes (Disabling)
  Sender: FDA-Public Use
  Company Number: 06P-163-0342063-00

PATIENT
  Age: 49 Year
  Sex: Male

DRUGS (2)
  1. BIAXIN XL [Suspect]
     Indication: SINUSITIS
     Dosage: 500 MG, 2 IN 1 D, PER ORAL
     Route: 048
     Dates: start: 20041201, end: 20041215
  2. FINASTERIDE [Concomitant]

REACTIONS (2)
  - DEAFNESS [None]
  - TINNITUS [None]
